FAERS Safety Report 7109104-6 (Version None)
Quarter: 2010Q4

REPORT INFORMATION
  Report Type: 
  Country: None (occurrence: None)
  Receive Date: 20101117
  Receipt Date: 20101112
  Transmission Date: 20110411
  Serious: Yes (Other)
  Sender: FDA-Public Use
  Company Number: JP-PFIZER INC-2010140243

PATIENT
  Age: 55 Year
  Sex: Female

DRUGS (6)
  1. LYRICA [Suspect]
     Indication: LUMBAR SPINAL STENOSIS
     Dosage: 150 MG, DAY
     Route: 048
     Dates: start: 20101023, end: 20101026
  2. NEUROTROPIN [Concomitant]
     Dosage: 6 DF, DAY
     Route: 048
  3. ONE-ALPHA [Concomitant]
  4. GASTER [Concomitant]
     Dosage: 10 MG, DAY
  5. DEPAS [Concomitant]
     Dosage: 0.5 MG, DAY
     Route: 048
  6. RISEDRONATE SODIUM HYDRATE [Concomitant]
     Dosage: 17.5 MG, WEEKLY
     Route: 048

REACTIONS (8)
  - DECREASED APPETITE [None]
  - DIZZINESS [None]
  - HYPERTENSION [None]
  - HYPERVENTILATION [None]
  - HYPOAESTHESIA [None]
  - LOSS OF CONSCIOUSNESS [None]
  - MALAISE [None]
  - VENTRICULAR EXTRASYSTOLES [None]
